FAERS Safety Report 23767226 (Version 2)
Quarter: 2025Q2

REPORT INFORMATION
  Report Type: Report from Study
  Country: DE (occurrence: DE)
  Receive Date: 20240422
  Receipt Date: 20250404
  Transmission Date: 20250717
  Serious: Yes (Hospitalization)
  Sender: SAMSUNG BIOEPIS
  Company Number: DE-SAMSUNG BIOEPIS-SB-2024-11662

PATIENT
  Sex: Female

DRUGS (2)
  1. ETANERCEPT [Suspect]
     Active Substance: ETANERCEPT
     Indication: Rheumatoid arthritis
     Dates: start: 202302
  2. ETANERCEPT [Suspect]
     Active Substance: ETANERCEPT

REACTIONS (1)
  - Laryngeal papilloma [Recovered/Resolved]

NARRATIVE: CASE EVENT DATE: 20230720
